FAERS Safety Report 14000068 (Version 1)
Quarter: 2017Q3

REPORT INFORMATION
  Report Type: Spontaneous
  Country: US (occurrence: None)
  Receive Date: 20170922
  Receipt Date: 20170922
  Transmission Date: 20171128
  Serious: No
  Sender: FDA-Public Use
  Company Number: None

PATIENT
  Age: 62 Year
  Sex: Female

DRUGS (17)
  1. SPIRIVA [Concomitant]
     Active Substance: TIOTROPIUM BROMIDE MONOHYDRATE
  2. FUROSEMIDE. [Concomitant]
     Active Substance: FUROSEMIDE
  3. PREDNISONE. [Concomitant]
     Active Substance: PREDNISONE
  4. VIIBRYD [Concomitant]
     Active Substance: VILAZODONE HYDROCHLORIDE
  5. VESICARE [Concomitant]
     Active Substance: SOLIFENACIN SUCCINATE
  6. SIMETHICONE (DIMETHICONE) [Concomitant]
     Active Substance: DIMETHICONE
  7. ZYRTEC [Concomitant]
     Active Substance: CETIRIZINE HYDROCHLORIDE
  8. LANTUS [Concomitant]
     Active Substance: INSULIN GLARGINE
  9. OXYCODONE [Concomitant]
     Active Substance: OXYCODONE
  10. TRIAMCINOLONE CREAM [Concomitant]
     Active Substance: TRIAMCINOLONE
  11. HARVONI [Suspect]
     Active Substance: LEDIPASVIR\SOFOSBUVIR
     Indication: HEPATITIS C
     Dosage: ??TO 06-OCT-2017
     Route: 048
     Dates: start: 20170714
  12. NOVOLOG [Concomitant]
     Active Substance: INSULIN ASPART
  13. LISINOPRIL. [Concomitant]
     Active Substance: LISINOPRIL
  14. XIFAXAN [Concomitant]
     Active Substance: RIFAXIMIN
  15. LACTULOSE. [Concomitant]
     Active Substance: LACTULOSE
  16. SPIRONOLACTONE. [Concomitant]
     Active Substance: SPIRONOLACTONE
  17. BACTRIM DS [Concomitant]
     Active Substance: SULFAMETHOXAZOLE\TRIMETHOPRIM

REACTIONS (3)
  - Vomiting [None]
  - Dehydration [None]
  - Blood creatinine increased [None]

NARRATIVE: CASE EVENT DATE: 20170921
